FAERS Safety Report 9715268 (Version 1)
Quarter: 2013Q4

REPORT INFORMATION
  Report Type: Spontaneous
  Country: US (occurrence: US)
  Receive Date: 20131127
  Receipt Date: 20131127
  Transmission Date: 20140711
  Serious: No
  Sender: FDA-Public Use
  Company Number: US-009507513-1309USA010657

PATIENT
  Sex: Female

DRUGS (3)
  1. CLARITIN [Suspect]
     Indication: SNEEZING
     Dosage: UNK, ONCE
     Route: 048
     Dates: start: 20130914
  2. CLARITIN [Suspect]
     Indication: NASAL CONGESTION
  3. IBUPROFEN [Suspect]
     Indication: HEADACHE
     Dosage: UNK, UNKNOWN
     Route: 048

REACTIONS (4)
  - Tremor [Unknown]
  - Nervousness [Unknown]
  - Insomnia [Unknown]
  - Headache [Not Recovered/Not Resolved]
